FAERS Safety Report 9380187 (Version 2)
Quarter: 2013Q3

REPORT INFORMATION
  Report Type: Spontaneous
  Country: US (occurrence: US)
  Receive Date: 20130702
  Receipt Date: 20130805
  Transmission Date: 20140515
  Serious: No
  Sender: FDA-Public Use
  Company Number: US-009507513-1306USA004946

PATIENT
  Age: 51 Year
  Sex: Male
  Weight: 72.56 kg

DRUGS (3)
  1. CLARITIN-D-12 [Suspect]
     Indication: SINUS HEADACHE
     Dosage: 5 MG, ONCE
     Route: 048
     Dates: start: 20130603, end: 20130604
  2. CLARITIN-D-12 [Suspect]
     Indication: RESPIRATORY TRACT CONGESTION
  3. VALTREX [Concomitant]
     Indication: HERPES SIMPLEX
     Dosage: UNK, UNKNOWN

REACTIONS (3)
  - Feeling jittery [Recovered/Resolved]
  - Myalgia [Recovered/Resolved]
  - Drug ineffective [Unknown]
